FAERS Safety Report 4789502-6 (Version None)
Quarter: 2005Q4

REPORT INFORMATION
  Report Type: 
  Country: None (occurrence: None)
  Receive Date: 20051005
  Receipt Date: 20051005
  Transmission Date: 20060501
  Serious: Yes (Life-Threatening, Hospitalization)
  Sender: FDA-Public Use
  Company Number: None

PATIENT
  Sex: Male
  Weight: 104.5 kg

DRUGS (10)
  1. PHENYTOIN [Suspect]
     Indication: CONVULSION
     Dosage: 300MG PO BID
     Route: 048
     Dates: start: 20050401, end: 20050517
  2. ASA/DIPYRIDAMOLE [Concomitant]
  3. FOLATE [Concomitant]
  4. HYDROCHLOROTHIAZIDE [Concomitant]
  5. VALPROIC ACID [Concomitant]
  6. VIT B [Concomitant]
  7. ESCITALOPRAM OXALATE [Concomitant]
  8. PIOGLITAZONE HCL [Concomitant]
  9. AMLODIPINE/BENAZEPRIL [Concomitant]
  10. GLIPIZIDE [Concomitant]

REACTIONS (2)
  - COORDINATION ABNORMAL [None]
  - FALL [None]
